FAERS Safety Report 7823649-2 (Version None)
Quarter: 2011Q4

REPORT INFORMATION
  Report Type: 
  Country: None (occurrence: None)
  Receive Date: 20111019
  Receipt Date: 20111019
  Transmission Date: 20120403
  Serious: Yes (Other)
  Sender: FDA-Public Use
  Company Number: None

PATIENT
  Age: 41 Year
  Sex: Male
  Weight: 123.83 kg

DRUGS (1)
  1. LORATADINE [Suspect]
     Dosage: 1 TABLET
     Route: 048
     Dates: start: 20111013, end: 20111017

REACTIONS (8)
  - INSOMNIA [None]
  - PRODUCT CONTAMINATION [None]
  - PRODUCT MEASURED POTENCY ISSUE [None]
  - PRODUCT FORMULATION ISSUE [None]
  - PRODUCT QUALITY ISSUE [None]
  - PANIC ATTACK [None]
  - NERVOUSNESS [None]
  - ANXIETY [None]
